FAERS Safety Report 4727082-1 (Version None)
Quarter: 2005Q3

REPORT INFORMATION
  Report Type: 
  Country: None (occurrence: None)
  Receive Date: 20050728
  Receipt Date: 20050714
  Transmission Date: 20060218
  Serious: Yes (Hospitalization)
  Sender: FDA-Public Use
  Company Number: 200515782US

PATIENT
  Age: 28 Year
  Sex: Female

DRUGS (1)
  1. KETEK [Suspect]
     Indication: BRONCHITIS

REACTIONS (3)
  - HEPATIC FAILURE [None]
  - HYPERSENSITIVITY [None]
  - LOSS OF CONSCIOUSNESS [None]
